FAERS Safety Report 17112732 (Version 4)
Quarter: 2022Q1

REPORT INFORMATION
  Report Type: Spontaneous
  Country: CA (occurrence: CA)
  Receive Date: 20191204
  Receipt Date: 20220215
  Transmission Date: 20220423
  Serious: Yes (Death, Hospitalization, Other)
  Sender: FDA-Public Use
  Company Number: CA-PURDUE-CAN-2019-0010432

PATIENT
  Age: 51 Year
  Sex: Female

DRUGS (32)
  1. MORPHINE SULFATE [Suspect]
     Active Substance: MORPHINE SULFATE
     Indication: Product used for unknown indication
     Dosage: UNK
     Route: 065
  2. SANDOSTATIN [Suspect]
     Active Substance: OCTREOTIDE ACETATE
     Indication: Neuroendocrine carcinoma
     Dosage: 30 MG, MONTHLY
     Route: 030
  3. SANDOSTATIN [Suspect]
     Active Substance: OCTREOTIDE ACETATE
     Dosage: UNK
     Route: 058
  4. SANDOSTATIN [Suspect]
     Active Substance: OCTREOTIDE ACETATE
     Dosage: 30 MG, MONTHLY
     Route: 030
  5. SANDOSTATIN [Suspect]
     Active Substance: OCTREOTIDE ACETATE
     Dosage: 60 MG, MONTHLY
     Route: 030
  6. SANDOSTATIN [Suspect]
     Active Substance: OCTREOTIDE ACETATE
     Dosage: 30 MG, MONTHLY
     Route: 030
  7. SANDOSTATIN [Suspect]
     Active Substance: OCTREOTIDE ACETATE
     Dosage: 60 MG, UNK
     Route: 058
  8. SANDOSTATIN [Suspect]
     Active Substance: OCTREOTIDE ACETATE
     Dosage: 30 MG, MONTHLY
     Route: 030
  9. SANDOSTATIN [Suspect]
     Active Substance: OCTREOTIDE ACETATE
     Dosage: 60 MG, MONTHLY
     Route: 030
  10. SANDOSTATIN [Suspect]
     Active Substance: OCTREOTIDE ACETATE
     Dosage: 30 MG, MONTHLY
     Route: 030
  11. SANDOSTATIN [Suspect]
     Active Substance: OCTREOTIDE ACETATE
     Dosage: 60 MG, 3/WEEK
     Route: 030
  12. SANDOSTATIN [Suspect]
     Active Substance: OCTREOTIDE ACETATE
     Dosage: 60 MG, UNK
     Route: 030
  13. SANDOSTATIN [Suspect]
     Active Substance: OCTREOTIDE ACETATE
     Dosage: 60 MG (ONCE EVERY 3 WEEKS)
     Route: 065
  14. SANDOSTATIN [Suspect]
     Active Substance: OCTREOTIDE ACETATE
     Dosage: 30 MG, MONTHLY
     Route: 030
  15. SANDOSTATIN [Suspect]
     Active Substance: OCTREOTIDE ACETATE
     Dosage: 60 MG, MONTHLY
     Route: 030
  16. SANDOSTATIN [Suspect]
     Active Substance: OCTREOTIDE ACETATE
     Dosage: 30 MG, MONTHLY
     Route: 030
  17. SANDOSTATIN [Suspect]
     Active Substance: OCTREOTIDE ACETATE
     Dosage: 60 MG, UNK
     Route: 058
  18. SANDOSTATIN [Suspect]
     Active Substance: OCTREOTIDE ACETATE
     Dosage: 60 MG (ONCE EVERY 3 WEEKS)
     Route: 065
  19. SANDOSTATIN [Suspect]
     Active Substance: OCTREOTIDE ACETATE
     Dosage: UNK
     Route: 030
  20. SANDOSTATIN [Suspect]
     Active Substance: OCTREOTIDE ACETATE
     Dosage: 30 MG, MONTHLY
     Route: 030
  21. SANDOSTATIN [Suspect]
     Active Substance: OCTREOTIDE ACETATE
     Dosage: 60 MG, MONTHLY
     Route: 030
  22. SANDOSTATIN [Suspect]
     Active Substance: OCTREOTIDE ACETATE
     Dosage: 30 MG, MONTHLY
     Route: 030
  23. SANDOSTATIN [Suspect]
     Active Substance: OCTREOTIDE ACETATE
     Dosage: 60 MG, UNK
     Route: 058
  24. SANDOSTATIN [Suspect]
     Active Substance: OCTREOTIDE ACETATE
     Dosage: UNK
     Route: 058
  25. GLICLAZIDE [Concomitant]
     Active Substance: GLICLAZIDE
     Indication: Product used for unknown indication
     Route: 065
  26. GLICLAZIDE [Concomitant]
     Active Substance: GLICLAZIDE
     Dosage: UNK
  27. PANCREATIN [Suspect]
     Active Substance: PANCRELIPASE
     Indication: Pancreatic enzyme abnormality
     Dosage: 12 IU, UNK
     Route: 048
  28. LUTETIUM LU-177 [Concomitant]
     Active Substance: LUTETIUM LU-177
     Indication: Product used for unknown indication
     Route: 065
  29. METFORMIN [Concomitant]
     Active Substance: METFORMIN HYDROCHLORIDE
     Indication: Diabetes mellitus
     Dosage: UNK
     Route: 065
  30. METFORMIN HYDROCHLORIDE\SITAGLIPTIN PHOSPHATE [Concomitant]
     Active Substance: METFORMIN HYDROCHLORIDE\SITAGLIPTIN PHOSPHATE
     Indication: Diabetes mellitus
     Dosage: 2 DF, DAILY
     Route: 048
  31. VEDOLIZUMAB [Concomitant]
     Active Substance: VEDOLIZUMAB
     Indication: Type 2 diabetes mellitus
     Route: 065
  32. LUTETIUM CHLORIDE LU-177 [Concomitant]
     Active Substance: LUTETIUM CHLORIDE LU-177
     Indication: Product used for unknown indication
     Dosage: UNK
     Route: 065

REACTIONS (61)
  - Malignant neoplasm progression [Fatal]
  - Bronchitis [Fatal]
  - Abnormal faeces [Fatal]
  - Anal incontinence [Fatal]
  - Arthralgia [Fatal]
  - Chills [Fatal]
  - Cough [Fatal]
  - Diarrhoea [Fatal]
  - Thermal burns of eye [Fatal]
  - Eye disorder [Fatal]
  - Eye inflammation [Fatal]
  - Eye irritation [Fatal]
  - Eye pruritus [Fatal]
  - Fall [Fatal]
  - Fatigue [Fatal]
  - Feeling abnormal [Fatal]
  - Flatulence [Fatal]
  - Headache [Fatal]
  - Incorrect dose administered [Fatal]
  - Influenza [Fatal]
  - Influenza like illness [Fatal]
  - Joint swelling [Fatal]
  - Malaise [Fatal]
  - Nasal congestion [Fatal]
  - Nasopharyngitis [Fatal]
  - Nausea [Fatal]
  - Oropharyngeal pain [Fatal]
  - Peripheral swelling [Fatal]
  - Productive cough [Fatal]
  - Rhinorrhoea [Fatal]
  - Sneezing [Fatal]
  - Synovial cyst [Fatal]
  - Viral infection [Fatal]
  - Vision blurred [Fatal]
  - Visual impairment [Fatal]
  - Vitreous floaters [Fatal]
  - Wrong technique in product usage process [Fatal]
  - Weight decreased [Fatal]
  - Wound infection [Fatal]
  - Vomiting [Fatal]
  - Mobility decreased [Fatal]
  - Musculoskeletal discomfort [Fatal]
  - Needle issue [Fatal]
  - Neuroendocrine carcinoma [Fatal]
  - Swelling of eyelid [Fatal]
  - Somnolence [Fatal]
  - Taste disorder [Fatal]
  - Throat irritation [Fatal]
  - Skin laceration [Fatal]
  - Pain in extremity [Fatal]
  - Proctalgia [Fatal]
  - Blood pressure increased [Fatal]
  - Death [Fatal]
  - Localised infection [Fatal]
  - Injection site haemorrhage [Fatal]
  - Accident [Fatal]
  - Asthenia [Fatal]
  - Drug ineffective [Fatal]
  - Erythema [Fatal]
  - Oedema peripheral [Fatal]
  - Oral infection [Fatal]
